FAERS Safety Report 6541319-8 (Version None)
Quarter: 2010Q1

REPORT INFORMATION
  Report Type: 
  Country: None (occurrence: None)
  Receive Date: 20100118
  Receipt Date: 20100106
  Transmission Date: 20100710
  Serious: Yes (Hospitalization, Other)
  Sender: FDA-Public Use
  Company Number: GB-ELI_LILLY_AND_COMPANY-GB201001000970

PATIENT
  Age: 32 Year
  Sex: Female

DRUGS (4)
  1. PROZAC [Suspect]
     Indication: DEPRESSION
     Dosage: 20 MG, DAILY (1/D)
     Route: 065
  2. PROZAC [Suspect]
     Dosage: 600 MG, DAILY (1/D)
     Route: 065
     Dates: start: 20060206, end: 20060206
  3. PROZAC [Suspect]
     Dosage: UNK, DAILY (1/D)
     Route: 065
     Dates: end: 20060210
  4. CONCERTA [Concomitant]
     Dosage: 972 MG, DAILY (1/D)
     Route: 048
     Dates: start: 20060206, end: 20060206

REACTIONS (7)
  - HALLUCINATION [None]
  - HYPERVENTILATION [None]
  - MALAISE [None]
  - MULTIPLE DRUG OVERDOSE [None]
  - OVERDOSE [None]
  - PARANOIA [None]
  - TACHYCARDIA [None]
